FAERS Safety Report 25524123 (Version 1)
Quarter: 2025Q3

REPORT INFORMATION
  Report Type: Spontaneous
  Country: CA (occurrence: CA)
  Receive Date: 20250707
  Receipt Date: 20250707
  Transmission Date: 20251020
  Serious: Yes (Other)
  Sender: Haleon PLC
  Company Number: CA-HALEON-2250881

PATIENT
  Age: 65 Year
  Sex: Male

DRUGS (5)
  1. IBUPROFEN [Suspect]
     Active Substance: IBUPROFEN
     Indication: Pericarditis
  2. NITROGLYCERIN [Concomitant]
     Active Substance: NITROGLYCERIN
     Indication: Myocardial infarction
  3. ASPIRIN [Concomitant]
     Active Substance: ASPIRIN
     Indication: Pericarditis
  4. COLCHICINE [Concomitant]
     Active Substance: COLCHICINE
     Indication: Pericarditis
  5. PREDNISONE [Concomitant]
     Active Substance: PREDNISONE
     Indication: Pericarditis

REACTIONS (4)
  - Tubulointerstitial nephritis [Unknown]
  - Renal impairment [Unknown]
  - Hypotension [Unknown]
  - Renal tubular necrosis [Unknown]
